FAERS Safety Report 4877076-0 (Version None)
Quarter: 2006Q1

REPORT INFORMATION
  Report Type: 
  Country: None (occurrence: None)
  Receive Date: 20060110
  Receipt Date: 20060103
  Transmission Date: 20060701
  Serious: Yes (Life-Threatening, Hospitalization, Disabling, Other)
  Sender: FDA-Public Use
  Company Number: GB-MERCK-0601GBR00004

PATIENT
  Age: 53 Year
  Sex: Male

DRUGS (6)
  1. ZOCOR [Suspect]
     Route: 048
     Dates: start: 20050503, end: 20051116
  2. LEVOTHYROXINE SODIUM [Concomitant]
     Route: 048
     Dates: start: 20051116
  3. CARBIMAZOLE [Concomitant]
     Route: 048
     Dates: start: 20050503, end: 20050820
  4. TERBINAFINE [Concomitant]
     Route: 048
  5. PROPRANOLOL HYDROCHLORIDE [Concomitant]
     Route: 065
     Dates: start: 20050503, end: 20050820
  6. IODINE [Concomitant]
     Route: 042
     Dates: start: 20050719, end: 20050719

REACTIONS (3)
  - ABASIA [None]
  - COMPARTMENT SYNDROME [None]
  - RHABDOMYOLYSIS [None]
